FAERS Safety Report 6540609-2 (Version None)
Quarter: 2010Q1

REPORT INFORMATION
  Report Type: 
  Country: None (occurrence: None)
  Receive Date: 20100112
  Receipt Date: 20091019
  Transmission Date: 20100710
  Serious: No
  Sender: FDA-Public Use
  Company Number: 2009-00673

PATIENT
  Age: 72 Year
  Sex: Female
  Weight: 71.2147 kg

DRUGS (21)
  1. COLD REMEDY GEL SWABS [Suspect]
     Dosage: QID - SPORADIC FOR 1 YR - ABOUT A YR AGO-UNKNOWN
  2. DARVOCET [Concomitant]
  3. TRICOR [Concomitant]
  4. PRAVACHOL [Concomitant]
  5. NITRO-DUR [Concomitant]
  6. PLAVIX [Concomitant]
  7. METOCLOPRAMIDE [Concomitant]
  8. SYNTHROID [Concomitant]
  9. AMITRIPTYLINE HCL [Concomitant]
  10. SOTALOL [Concomitant]
  11. LORAZEPAM [Concomitant]
  12. EFFEXOR [Concomitant]
  13. SKELACTIN [Concomitant]
  14. DIGOXIN [Concomitant]
  15. CHLORCON [Concomitant]
  16. NOTRO SPRAY [Concomitant]
  17. COMBIVENT [Concomitant]
  18. EVISTA [Concomitant]
  19. CALCIUM [Concomitant]
  20. VITAMIN D [Concomitant]
  21. OXYGEN-2 LITERS [Concomitant]

REACTIONS (1)
  - ANOSMIA [None]
